FAERS Safety Report 18184378 (Version 2)
Quarter: 2020Q3

REPORT INFORMATION
  Report Type: Spontaneous
  Country: FR (occurrence: FR)
  Receive Date: 20200824
  Receipt Date: 20200827
  Transmission Date: 20201103
  Serious: Yes (Other)
  Sender: FDA-Public Use
  Company Number: FR-ACCORD-196688

PATIENT
  Age: 85 Year
  Sex: Male

DRUGS (7)
  1. MIANSERIN [Suspect]
     Active Substance: MIANSERIN
     Indication: MIXED ANXIETY AND DEPRESSIVE DISORDER
     Route: 048
     Dates: start: 2020
  2. FENOFIBRATE. [Suspect]
     Active Substance: FENOFIBRATE
     Indication: DYSLIPIDAEMIA
     Route: 048
  3. LOXAPINE. [Suspect]
     Active Substance: LOXAPINE
     Indication: AGITATION
     Route: 030
     Dates: start: 20200624, end: 20200629
  4. ACEBUTOLOL [Suspect]
     Active Substance: ACEBUTOLOL
     Indication: HYPERTENSION
     Route: 048
  5. LERCANIDIPINE [Suspect]
     Active Substance: LERCANIDIPINE
     Indication: HYPERTENSION
     Route: 048
     Dates: start: 20200617
  6. URAPIDIL [Suspect]
     Active Substance: URAPIDIL
     Indication: HYPERTENSION
     Route: 048
     Dates: start: 20200622
  7. CLOZAPINE. [Suspect]
     Active Substance: CLOZAPINE
     Indication: BEHAVIOUR DISORDER
     Route: 048
     Dates: start: 20200625

REACTIONS (1)
  - Aplastic anaemia [Not Recovered/Not Resolved]

NARRATIVE: CASE EVENT DATE: 20200628
